FAERS Safety Report 10438343 (Version 2)
Quarter: 2014Q3

REPORT INFORMATION
  Report Type: Spontaneous
  Country: US (occurrence: US)
  Receive Date: 20140908
  Receipt Date: 20140908
  Transmission Date: 20150326
  Serious: No
  Sender: FDA-Public Use
  Company Number: US-BRISTOL-MYERS SQUIBB COMPANY-19840925

PATIENT
  Age: 6 Year
  Sex: Male

DRUGS (2)
  1. CONCERTA [Concomitant]
     Active Substance: METHYLPHENIDATE HYDROCHLORIDE
     Dosage: 36MG BY MOUTH ORALLY
     Route: 048
  2. ABILIFY [Suspect]
     Active Substance: ARIPIPRAZOLE
     Indication: AFFECTIVE DISORDER
     Dosage: 5 MG ORDERED
     Route: 048

REACTIONS (5)
  - Drooling [Recovering/Resolving]
  - Extrapyramidal disorder [Unknown]
  - Off label use [Recovering/Resolving]
  - Medication error [Unknown]
  - Musculoskeletal stiffness [Recovering/Resolving]
